FAERS Safety Report 11446011 (Version 1)
Quarter: 2015Q3

REPORT INFORMATION
  Report Type: Spontaneous
  Country: US (occurrence: US)
  Receive Date: 20150831
  Receipt Date: 20150831
  Transmission Date: 20151125
  Serious: No
  Sender: FDA-Public Use
  Company Number: US-ELI_LILLY_AND_COMPANY-US200808003304

PATIENT
  Age: 80 Year
  Sex: Female

DRUGS (3)
  1. METFORMIN [Concomitant]
     Active Substance: METFORMIN HYDROCHLORIDE
  2. CYMBALTA [Suspect]
     Active Substance: DULOXETINE HYDROCHLORIDE
     Indication: DIABETIC NEUROPATHY
     Dates: start: 20080815
  3. FELODIPINE. [Concomitant]
     Active Substance: FELODIPINE

REACTIONS (3)
  - Renal pain [Recovered/Resolved]
  - Thirst [Recovered/Resolved]
  - Urine output increased [Recovered/Resolved]

NARRATIVE: CASE EVENT DATE: 20080815
